FAERS Safety Report 5472222-2 (Version None)
Quarter: 2007Q3

REPORT INFORMATION
  Report Type: 
  Country: None (occurrence: None)
  Receive Date: 20070926
  Receipt Date: 20070911
  Transmission Date: 20080115
  Serious: Yes (Hospitalization, Other)
  Sender: FDA-Public Use
  Company Number: 018356

PATIENT
  Sex: Female
  Weight: 81.6 kg

DRUGS (7)
  1. PROPRANOLOL(PROPRANOLOL HYDROCHLORIDE) TABLET, 80MG [Suspect]
     Indication: HEADACHE
     Dosage: 80 MG, QD, ORAL
     Route: 048
     Dates: start: 19960101
  2. PROPRANOLOL(PROPRANOLOL HYDROCHLORIDE) TABLET, 80MG [Suspect]
     Indication: HYPERTENSION
     Dosage: 80 MG, QD, ORAL
     Route: 048
     Dates: start: 19960101
  3. TAMOXIFEN CITRATE [Suspect]
     Indication: BREAST CANCER
  4. ASPIRIN [Concomitant]
  5. FOLIC ACID [Concomitant]
  6. CALCIUM D (ERGOCALCIFEROL, ASCORBIC ACID, CALCIUM PHOSPHATE DIBASIC, C [Concomitant]
  7. MULTIVITAMIN [Concomitant]

REACTIONS (4)
  - BLOOD PRESSURE INCREASED [None]
  - BREAST CANCER [None]
  - CARPAL TUNNEL SYNDROME [None]
  - UTERINE CANCER [None]
